FAERS Safety Report 5377187-X (Version None)
Quarter: 2007Q3

REPORT INFORMATION
  Report Type: 
  Country: None (occurrence: None)
  Receive Date: 20070703
  Receipt Date: 20070622
  Transmission Date: 20080115
  Serious: Yes (Other)
  Sender: FDA-Public Use
  Company Number: US-ELI_LILLY_AND_COMPANY-US200706005224

PATIENT
  Age: 71 Year
  Sex: Female

DRUGS (11)
  1. HUMALOG MIX 75/25 [Suspect]
     Indication: DIABETES MELLITUS
     Dosage: 30 U, EACH MORNING
     Dates: start: 19970101
  2. HUMALOG MIX 75/25 [Suspect]
     Dosage: 30 U, EACH MORNING
     Dates: start: 19970101
  3. HUMALOG MIX 75/25 [Suspect]
     Dosage: 30 U, EACH MORNING
     Dates: start: 19970101
  4. HUMALOG MIX 75/25 [Suspect]
     Dosage: 30 U, EACH MORNING
     Dates: start: 19970101
  5. HUMALOG MIX 75/25 [Suspect]
     Dosage: 30 U, EACH MORNING
     Dates: start: 19970101
  6. HUMALOG MIX 75/25 [Suspect]
     Dosage: 25 U, EACH EVENING
     Dates: start: 19970101
  7. HUMALOG MIX 75/25 [Suspect]
     Dosage: 25 U, EACH EVENING
     Dates: start: 19970101
  8. HUMALOG MIX 75/25 [Suspect]
     Dosage: 25 U, EACH EVENING
     Dates: start: 19970101
  9. HUMALOG MIX 75/25 [Suspect]
     Dosage: 25 U, EACH EVENING
     Dates: start: 19970101
  10. HUMALOG MIX 75/25 [Suspect]
     Dosage: 25 U, EACH EVENING
     Dates: start: 19970101
  11. PLAVIX [Concomitant]
     Dosage: 75 MG, UNK

REACTIONS (6)
  - ABNORMAL BEHAVIOUR [None]
  - CEREBROVASCULAR ACCIDENT [None]
  - FEELING ABNORMAL [None]
  - MEMORY IMPAIRMENT [None]
  - PAIN IN JAW [None]
  - VASODILATATION [None]
